FAERS Safety Report 6136576-6 (Version None)
Quarter: 2009Q1

REPORT INFORMATION
  Report Type: 
  Country: None (occurrence: None)
  Receive Date: 20090325
  Receipt Date: 20090313
  Transmission Date: 20090719
  Serious: Yes (Disabling)
  Sender: FDA-Public Use
  Company Number: DSA_33367_2009

PATIENT
  Sex: Female

DRUGS (5)
  1. XENAZINE [Suspect]
     Indication: DYSTONIA
     Dosage: (25 MG)
     Dates: start: 20090116, end: 20090309
  2. REQUIP [Concomitant]
  3. LEXAPRO [Concomitant]
  4. BACLOFEN [Concomitant]
  5. CARBIDOPA AND LEVODOPA [Concomitant]

REACTIONS (3)
  - ABASIA [None]
  - BALANCE DISORDER [None]
  - MUSCLE SPASMS [None]
